FAERS Safety Report 9284070 (Version 1)
Quarter: 2013Q2

REPORT INFORMATION
  Report Type: Spontaneous
  Country: IT (occurrence: IT)
  Receive Date: 20130510
  Receipt Date: 20130510
  Transmission Date: 20140414
  Serious: Yes (Hospitalization)
  Sender: FDA-Public Use
  Company Number: IT-BAYER-2013-055697

PATIENT
  Age: 74 Year
  Sex: Male

DRUGS (8)
  1. CARDIOASPIRIN [Suspect]
     Indication: ACUTE MYOCARDIAL INFARCTION
     Dosage: 100 MG, QD
     Route: 048
     Dates: start: 20120101, end: 20120327
  2. PRASUGREL [Concomitant]
     Dosage: DAILY DOSE 10 MG
     Route: 048
  3. TRIATEC [Concomitant]
     Dosage: DAILY DOSE 10 MG
     Route: 048
  4. CONGESCOR [Concomitant]
     Dosage: DAILY DOSE 3.75 MG
     Route: 048
  5. FUROSEMIDE [Concomitant]
     Dosage: DAILY DOSE 75 MG
     Route: 048
  6. RANITIDIN [Concomitant]
     Dosage: DAILY DOSE 300 MG
     Route: 048
  7. ZYLORIC [Concomitant]
     Dosage: DAILY DOSE 150 MG
     Route: 048
  8. TORVAST [Concomitant]
     Dosage: DAILY DOSE 80 MG
     Route: 048

REACTIONS (3)
  - Presyncope [Unknown]
  - Melaena [Unknown]
  - Hyperhidrosis [Unknown]
